FAERS Safety Report 23522408 (Version 3)
Quarter: 2024Q1

REPORT INFORMATION
  Report Type: Spontaneous
  Country: US (occurrence: US)
  Receive Date: 20240214
  Receipt Date: 20240320
  Transmission Date: 20240409
  Serious: No
  Sender: FDA-Public Use
  Company Number: US-PFIZER INC-202400031386

PATIENT
  Age: 10 Year
  Sex: Female
  Weight: 36.29 kg

DRUGS (2)
  1. GENOTROPIN [Suspect]
     Active Substance: SOMATROPIN
     Dosage: 1.6 TO 1.8, ONCE A DAY
     Dates: start: 202306
  2. GENOTROPIN [Suspect]
     Active Substance: SOMATROPIN
     Dosage: 1.4 MG

REACTIONS (3)
  - Drug dose omission by device [Unknown]
  - Wrong technique in device usage process [Unknown]
  - Device leakage [Unknown]
